FAERS Safety Report 5102102-3 (Version None)
Quarter: 2006Q3

REPORT INFORMATION
  Report Type: 
  Country: None (occurrence: None)
  Receive Date: 20060912
  Receipt Date: 20060407
  Transmission Date: 20061208
  Serious: Yes (Other)
  Sender: FDA-Public Use
  Company Number: PHEH2006US04624

PATIENT
  Age: 31 Year
  Sex: Female

DRUGS (3)
  1. ZELNORM [Suspect]
     Indication: IRRITABLE BOWEL SYNDROME
     Dosage: 6 MG, BID
     Route: 048
     Dates: start: 20041026, end: 20060101
  2. TEGRETOL [Suspect]
     Indication: EPILEPSY
     Dosage: 600 MG, BID
     Route: 048
     Dates: start: 20040107
  3. DEPO-PROVERA [Concomitant]
     Indication: CONTRACEPTION
     Dosage: 150 MG, Q3MO
     Route: 030
     Dates: start: 20040107

REACTIONS (2)
  - CONDITION AGGRAVATED [None]
  - CONVULSION [None]
